FAERS Safety Report 18995479 (Version 1)
Quarter: 2021Q1

REPORT INFORMATION
  Report Type: Spontaneous
  Country: IR (occurrence: IR)
  Receive Date: 20210310
  Receipt Date: 20210310
  Transmission Date: 20210420
  Serious: Yes (Other)
  Sender: FDA-Public Use
  Company Number: IR-SUN PHARMACEUTICAL INDUSTRIES LTD-2021RR-285037

PATIENT
  Age: 40 Year
  Sex: Male
  Weight: 80 kg

DRUGS (1)
  1. BACLOFEN. [Suspect]
     Active Substance: BACLOFEN
     Indication: BACK PAIN
     Dosage: 60?400 MILLIGRAMS FOR A WEEK BEFORE SURGERY
     Route: 048

REACTIONS (3)
  - Heart rate decreased [Recovered/Resolved]
  - Lung disorder [Recovered/Resolved]
  - Overdose [Unknown]
